FAERS Safety Report 11154652 (Version 1)
Quarter: 2015Q2

REPORT INFORMATION
  Report Type: Spontaneous
  Country: US (occurrence: US)
  Receive Date: 20150602
  Receipt Date: 20150602
  Transmission Date: 20150821
  Serious: No
  Sender: FDA-Public Use
  Company Number: US-HORIZON-PEN-0078-2015

PATIENT
  Age: 71 Year
  Sex: Male

DRUGS (9)
  1. PENNSAID [Suspect]
     Active Substance: DICLOFENAC SODIUM
     Indication: ARTHRITIS
     Dates: start: 20150513
  2. POTASSIUM [Concomitant]
     Active Substance: POTASSIUM
  3. CELEBREX [Concomitant]
     Active Substance: CELECOXIB
  4. TRIAMTERENE AND HYDROCHLOROTHIAZIDE [Concomitant]
     Active Substance: HYDROCHLOROTHIAZIDE\TRIAMTERENE
  5. ALLOPURINOL. [Concomitant]
     Active Substance: ALLOPURINOL
  6. SYNTHROID [Concomitant]
     Active Substance: LEVOTHYROXINE SODIUM
  7. PLAQUENIL [Concomitant]
     Active Substance: HYDROXYCHLOROQUINE SULFATE
  8. LIPITOR [Concomitant]
     Active Substance: ATORVASTATIN CALCIUM
  9. TENORMIN [Concomitant]
     Active Substance: ATENOLOL

REACTIONS (5)
  - Application site pain [Recovering/Resolving]
  - Off label use [Unknown]
  - Application site pruritus [Recovering/Resolving]
  - Accidental exposure to product [Recovering/Resolving]
  - Application site erythema [Recovering/Resolving]

NARRATIVE: CASE EVENT DATE: 20150513
